FAERS Safety Report 7386286-2 (Version None)
Quarter: 2011Q1

REPORT INFORMATION
  Report Type: 
  Country: None (occurrence: None)
  Receive Date: 20110329
  Receipt Date: 20110329
  Transmission Date: 20110831
  Serious: Yes (Life-Threatening, Hospitalization, Other)
  Sender: FDA-Public Use
  Company Number: None

PATIENT
  Age: 10 Year
  Sex: Male
  Weight: 38.5557 kg

DRUGS (2)
  1. COMPAZINE [Suspect]
     Indication: VOMITING
     Dates: start: 20100316, end: 20100318
  2. COMPAZINE [Suspect]
     Indication: ABDOMINAL PAIN UPPER
     Dates: start: 20100316, end: 20100318

REACTIONS (3)
  - MUSCULOSKELETAL STIFFNESS [None]
  - FATIGUE [None]
  - MUSCLE SPASMS [None]
